FAERS Safety Report 5206095-X (Version None)
Quarter: 2007Q1

REPORT INFORMATION
  Report Type: 
  Country: None (occurrence: None)
  Receive Date: 20070111
  Receipt Date: 20070109
  Transmission Date: 20070707
  Serious: Yes (Other)
  Sender: FDA-Public Use
  Company Number: 2006AP04680

PATIENT
  Age: 30317 Day
  Sex: Male

DRUGS (8)
  1. SEROQUEL [Suspect]
     Indication: DEMENTIA
     Route: 048
  2. SEROQUEL [Suspect]
     Route: 048
     Dates: end: 20060830
  3. SEROQUEL [Suspect]
     Route: 048
     Dates: start: 20060831
  4. MEVALOTIN [Concomitant]
     Indication: HYPERLIPIDAEMIA
     Route: 048
  5. OLMETEC [Concomitant]
     Indication: HYPERTENSION
     Route: 048
  6. ASPIRIN [Concomitant]
     Indication: CEREBRAL INFARCTION
     Route: 048
  7. LASIX [Concomitant]
     Indication: HYPERTENSION
     Route: 048
  8. AMLODIPINE BESYLATE [Concomitant]
     Route: 048

REACTIONS (1)
  - ELEVATED PACING THRESHOLD [None]
